FAERS Safety Report 8831387 (Version 2)
Quarter: 2012Q4

REPORT INFORMATION
  Report Type: 
  Country: US (occurrence: US)
  Receive Date: 20121009
  Receipt Date: 20121116
  Transmission Date: 20130627
  Serious: Yes (Hospitalization)
  Sender: FDA-Public Use
  Company Number: US-BAYER-2012-103928

PATIENT
  Age: 16 Year
  Sex: Female
  Weight: 81.63 kg

DRUGS (4)
  1. YASMIN [Suspect]
     Indication: MUSCULAR SPASM
     Dosage: UNK
     Dates: start: 20050801, end: 200602
  2. YASMIN [Suspect]
     Indication: PREMENSTRUAL SYNDROME
  3. OTHER ANALGESICS AND ANTIPYRETICS [Concomitant]
     Indication: MUSCULAR SPASM
     Dosage: UNK
     Dates: start: 2005, end: 2006
  4. IBUPROFEN [Concomitant]
     Dosage: 2 every 4 hours
     Dates: start: 2006

REACTIONS (8)
  - Cholecystectomy [None]
  - Abdominal pain upper [None]
  - Injury [None]
  - General physical health deterioration [None]
  - Emotional distress [None]
  - Anxiety [None]
  - Anhedonia [None]
  - Pain [None]
